FAERS Safety Report 13774381 (Version 1)
Quarter: 2017Q3

REPORT INFORMATION
  Report Type: Spontaneous
  Country: US (occurrence: US)
  Receive Date: 20170720
  Receipt Date: 20170720
  Transmission Date: 20171127
  Serious: No
  Sender: FDA-Public Use
  Company Number: US-RECKITT BENCKISER HEALTHCARE INT LIMITED-RB-92883-2016

PATIENT
  Age: 77 Year
  Sex: Female

DRUGS (1)
  1. MUCINEX DM [Suspect]
     Active Substance: DEXTROMETHORPHAN HYDROBROMIDE\GUAIFENESIN
     Indication: PRODUCT USED FOR UNKNOWN INDICATION
     Dosage: 600 MG, SINGLE
     Route: 048
     Dates: start: 20161020

REACTIONS (4)
  - Diarrhoea [Unknown]
  - Expired product administered [Unknown]
  - Oropharyngeal pain [Unknown]
  - Dry throat [Unknown]

NARRATIVE: CASE EVENT DATE: 20161020
